FAERS Safety Report 6653223-5 (Version None)
Quarter: 2010Q1

REPORT INFORMATION
  Report Type: 
  Country: None (occurrence: None)
  Receive Date: 20100326
  Receipt Date: 20100318
  Transmission Date: 20100710
  Serious: Yes (Death, Life-Threatening, Hospitalization)
  Sender: FDA-Public Use
  Company Number: JP-BRISTOL-MYERS SQUIBB COMPANY-14811186

PATIENT
  Age: 67 Year
  Sex: Male
  Weight: 70 kg

DRUGS (6)
  1. ERBITUX [Suspect]
     Indication: COLON CANCER
     Dosage: 28APR09-28APR09: 710MG 1 IN 1 WK 12MAY09-ONG: 440MG 1 IN 1 WK.ON 15MAY09 LAST AND 18 TH INF
     Route: 042
     Dates: start: 20090428, end: 20090915
  2. IRINOTECAN HCL [Suspect]
     Indication: COLON CANCER
     Dosage: 28APR09-12MAY09: 260MG 1 IN 2 WK 26MAY09-ONG: 200MG 1 IN 2 WK
     Route: 042
     Dates: start: 20090428
  3. CHLOR-TRIMETON [Concomitant]
     Indication: PREMEDICATION
     Route: 042
     Dates: start: 20090428, end: 20090915
  4. DECADRON [Concomitant]
     Indication: PREMEDICATION
     Route: 042
     Dates: start: 20090428, end: 20090915
  5. KYTRIL [Concomitant]
     Indication: PREMEDICATION
     Route: 042
     Dates: start: 20090428, end: 20090915
  6. ALLEGRA [Concomitant]
     Indication: SKIN DISORDER
     Route: 048
     Dates: start: 20090430

REACTIONS (1)
  - INTERSTITIAL LUNG DISEASE [None]
